FAERS Safety Report 8182967-1 (Version None)
Quarter: 2012Q1

REPORT INFORMATION
  Report Type: 
  Country: None (occurrence: None)
  Receive Date: 20120305
  Receipt Date: 20111222
  Transmission Date: 20120608
  Serious: No
  Sender: FDA-Public Use
  Company Number: US-BRISTOL-MYERS SQUIBB COMPANY-16312043

PATIENT
  Age: 67 Year
  Sex: Male
  Weight: 97 kg

DRUGS (2)
  1. KOMBIGLYZE XR [Suspect]
     Indication: BLOOD GLUCOSE INCREASED
     Dosage: ABT A WEEK AGO,1DF:2.5MG/1000MG,SAMPLES,CUTTING TABS IN HALF,DOSE AFTER COFFEE,TOAST IN THE MORNING
  2. KOMBIGLYZE XR [Suspect]
     Indication: GLUCOSE TOLERANCE IMPAIRED
     Dosage: ABT A WEEK AGO,1DF:2.5MG/1000MG,SAMPLES,CUTTING TABS IN HALF,DOSE AFTER COFFEE,TOAST IN THE MORNING

REACTIONS (2)
  - DYSPHAGIA [None]
  - MEDICATION ERROR [None]
